FAERS Safety Report 24287495 (Version 1)
Quarter: 2024Q3

REPORT INFORMATION
  Report Type: Spontaneous
  Country: US (occurrence: None)
  Receive Date: 20240904
  Receipt Date: 20240904
  Transmission Date: 20241016
  Serious: Yes (Other)
  Sender: Public
  Company Number: None

PATIENT
  Age: 71 Year
  Sex: Male

DRUGS (1)
  1. LENALIDOMIDE [Suspect]
     Active Substance: LENALIDOMIDE
     Indication: Primary amyloidosis
     Dosage: FREQUENCY : DAILY;?
     Route: 048
     Dates: start: 20240829

REACTIONS (2)
  - Dry skin [None]
  - Pruritus [None]

NARRATIVE: CASE EVENT DATE: 20240901
